FAERS Safety Report 10871644 (Version 1)
Quarter: 2015Q1

REPORT INFORMATION
  Report Type: Report from Study
  Country: US (occurrence: US)
  Receive Date: 20150226
  Receipt Date: 20150226
  Transmission Date: 20150721
  Serious: Yes (Other)
  Sender: FDA-Public Use
  Company Number: US-BAYER-2015-026875

PATIENT
  Age: 52 Year
  Sex: Male

DRUGS (1)
  1. STIVARGA [Suspect]
     Active Substance: REGORAFENIB
     Indication: COLORECTAL CANCER
     Dosage: 160 MG, QD
     Route: 048
     Dates: start: 20150212, end: 20150220

REACTIONS (5)
  - Blister [None]
  - Pain in extremity [None]
  - Mobility decreased [None]
  - Skin fissures [None]
  - Erythema [None]

NARRATIVE: CASE EVENT DATE: 201502
